FAERS Safety Report 25973489 (Version 2)
Quarter: 2025Q4

REPORT INFORMATION
  Report Type: Report from Study
  Country: US (occurrence: US)
  Receive Date: 20251029
  Receipt Date: 20251216
  Transmission Date: 20260118
  Serious: Yes (Other)
  Sender: ABBVIE
  Company Number: US-ABBVIE-6517288

PATIENT
  Age: 19 Year
  Sex: Female

DRUGS (2)
  1. RINVOQ [Suspect]
     Active Substance: UPADACITINIB
     Indication: Dermatitis atopic
     Route: 048
     Dates: start: 20250530, end: 2025
  2. RINVOQ [Suspect]
     Active Substance: UPADACITINIB
     Indication: Dermatitis atopic
     Route: 048
     Dates: start: 2025

REACTIONS (4)
  - Abscess [Recovered/Resolved]
  - Headache [Recovered/Resolved with Sequelae]
  - Acne [Recovered/Resolved with Sequelae]
  - Abscess [Recovering/Resolving]

NARRATIVE: CASE EVENT DATE: 20250101
